FAERS Safety Report 12122333 (Version 3)
Quarter: 2016Q1

REPORT INFORMATION
  Report Type: Spontaneous
  Country: TR (occurrence: TR)
  Receive Date: 20160226
  Receipt Date: 20160304
  Transmission Date: 20160526
  Serious: Yes (Death, Hospitalization)
  Sender: FDA-Public Use
  Company Number: PHHY2016TR025365

PATIENT
  Age: 41 Year
  Sex: Male
  Weight: 75 kg

DRUGS (1)
  1. GILENYA [Suspect]
     Active Substance: FINGOLIMOD HYDROCHLORIDE
     Indication: MULTIPLE SCLEROSIS
     Dosage: 0.5 MG, UNK
     Route: 065
     Dates: start: 201503

REACTIONS (5)
  - Loss of consciousness [Unknown]
  - Tongue disorder [Fatal]
  - Cardiac arrest [Fatal]
  - Sudden cardiac death [Fatal]
  - Urticaria [Fatal]

NARRATIVE: CASE EVENT DATE: 20160222
